FAERS Safety Report 7290302-6 (Version None)
Quarter: 2011Q1

REPORT INFORMATION
  Report Type: 
  Country: None (occurrence: None)
  Receive Date: 20110208
  Receipt Date: 20110208
  Transmission Date: 20110831
  Serious: No
  Sender: FDA-Public Use
  Company Number: None

PATIENT
  Age: 68 Year
  Sex: Female
  Weight: 86.637 kg

DRUGS (1)
  1. SIMVASTATIN [Suspect]
     Indication: HYPERLIPIDAEMIA
     Dates: start: 20070101

REACTIONS (6)
  - ABDOMINAL DISTENSION [None]
  - ERYTHEMA [None]
  - NAUSEA [None]
  - PYREXIA [None]
  - DYSPEPSIA [None]
  - ARTHRALGIA [None]
